FAERS Safety Report 18131180 (Version 1)
Quarter: 2020Q3

REPORT INFORMATION
  Report Type: Spontaneous
  Country: US (occurrence: US)
  Receive Date: 20200810
  Receipt Date: 20200810
  Transmission Date: 20201103
  Serious: No
  Sender: FDA-Public Use
  Company Number: US-AMNEAL PHARMACEUTICALS-2019-AMRX-02957

PATIENT
  Sex: Female
  Weight: 82 kg

DRUGS (3)
  1. METAXALONE. [Suspect]
     Active Substance: METAXALONE
     Indication: HEADACHE
     Dosage: 2 TABLETS, DAILY
     Route: 065
  2. METAXALONE. [Suspect]
     Active Substance: METAXALONE
     Indication: MUSCLE SPASMS
     Dosage: 3 TABLETS, DAILY
     Route: 065
  3. TIZANIDINE. [Suspect]
     Active Substance: TIZANIDINE
     Indication: MUSCLE SPASMS
     Dosage: 4 MILLIGRAM, QID OR EVERY 6 HOURS AS 1 NEEDED
     Route: 048

REACTIONS (3)
  - Somnolence [Unknown]
  - Fatigue [Unknown]
  - Inappropriate schedule of product administration [Unknown]
